FAERS Safety Report 7961915-0 (Version None)
Quarter: 2011Q4

REPORT INFORMATION
  Report Type: 
  Country: None (occurrence: None)
  Receive Date: 20111207
  Receipt Date: 20111018
  Transmission Date: 20120403
  Serious: Yes (Hospitalization)
  Sender: FDA-Public Use
  Company Number: BE-ROCHE-796268

PATIENT
  Sex: Female
  Weight: 70 kg

DRUGS (6)
  1. PEGINTERFERON ALFA-2A [Suspect]
     Indication: HEPATITIS C
     Route: 058
     Dates: start: 20110621, end: 20110809
  2. COPEGUS [Suspect]
     Indication: HEPATITIS C
     Route: 048
     Dates: start: 20110705, end: 20110810
  3. REDOMEX [Concomitant]
     Indication: NEUROPATHY PERIPHERAL
     Route: 048
  4. ACETAMINOPHEN [Concomitant]
     Indication: INFLUENZA LIKE ILLNESS
     Route: 048
  5. NOLVADEX [Concomitant]
     Route: 048
  6. LORMETAZEPAM [Concomitant]
     Indication: INSOMNIA
     Route: 048

REACTIONS (2)
  - PYREXIA [None]
  - PULMONARY ARTERIAL HYPERTENSION [None]
